FAERS Safety Report 12935269 (Version 1)
Quarter: 2016Q4

REPORT INFORMATION
  Report Type: Spontaneous
  Country: US (occurrence: US)
  Receive Date: 20161114
  Receipt Date: 20161114
  Transmission Date: 20170207
  Serious: No
  Sender: FDA-Public Use
  Company Number: US-JAZZ-2016-US-018456

PATIENT
  Sex: Female

DRUGS (23)
  1. XYREM [Suspect]
     Active Substance: SODIUM OXYBATE
     Dosage: 4.5 G, BID
     Route: 048
     Dates: start: 201605
  2. PANTOPRAZOLE [Concomitant]
     Active Substance: PANTOPRAZOLE SODIUM
  3. DEPAKOTE [Concomitant]
     Active Substance: DIVALPROEX SODIUM
  4. RIZATRIPTAN. [Concomitant]
     Active Substance: RIZATRIPTAN
  5. KLONOPIN [Concomitant]
     Active Substance: CLONAZEPAM
  6. ALLEGRA [Concomitant]
     Active Substance: FEXOFENADINE HYDROCHLORIDE
  7. FLUTICASONE [Concomitant]
     Active Substance: FLUTICASONE\FLUTICASONE PROPIONATE
  8. LAMICTAL [Concomitant]
     Active Substance: LAMOTRIGINE
  9. ELIQUIS [Concomitant]
     Active Substance: APIXABAN
  10. OXYCODONE [Concomitant]
     Active Substance: OXYCODONE
  11. TOPAMAX [Concomitant]
     Active Substance: TOPIRAMATE
  12. LOVENOX [Concomitant]
     Active Substance: ENOXAPARIN SODIUM
  13. LYRICA [Concomitant]
     Active Substance: PREGABALIN
  14. XYREM [Suspect]
     Active Substance: SODIUM OXYBATE
     Indication: FIBROMYALGIA
     Dosage: 2.25 G, BID
     Route: 048
     Dates: start: 201506, end: 201508
  15. NUVIGIL [Concomitant]
     Active Substance: ARMODAFINIL
  16. FUROSEMIDE. [Concomitant]
     Active Substance: FUROSEMIDE
  17. XYREM [Suspect]
     Active Substance: SODIUM OXYBATE
     Dosage: DOSE ADJUSTMENT
     Route: 048
     Dates: start: 201508, end: 201605
  18. VERAPAMIL [Concomitant]
     Active Substance: VERAPAMIL HYDROCHLORIDE
  19. CYCLOBENZAPRINE [Concomitant]
     Active Substance: CYCLOBENZAPRINE
  20. FLEXERIL [Concomitant]
     Active Substance: CYCLOBENZAPRINE HYDROCHLORIDE
  21. DIAZEPAM. [Concomitant]
     Active Substance: DIAZEPAM
  22. LEXAPRO [Concomitant]
     Active Substance: ESCITALOPRAM OXALATE
  23. DICLOFENAC [Concomitant]
     Active Substance: DICLOFENAC

REACTIONS (1)
  - Insomnia [Unknown]
